FAERS Safety Report 5405684-7 (Version None)
Quarter: 2007Q3

REPORT INFORMATION
  Report Type: 
  Country: None (occurrence: None)
  Receive Date: 20070806
  Receipt Date: 20070726
  Transmission Date: 20080115
  Serious: Yes (Other)
  Sender: FDA-Public Use
  Company Number: PHFR2007MT02243

PATIENT
  Age: 50 Year
  Sex: Female
  Weight: 80 kg

DRUGS (5)
  1. COVERSYL/BEL/ [Concomitant]
     Route: 065
  2. BURINEX [Concomitant]
     Route: 065
  3. ZOMIG [Concomitant]
     Route: 065
  4. LESCOL XL [Suspect]
     Indication: HYPERLIPIDAEMIA
     Dosage: 80MG / DAY
     Route: 048
     Dates: start: 20070401, end: 20070720
  5. ATORVASTATIN CALCIUM [Suspect]
     Indication: HYPERLIPIDAEMIA
     Dosage: 10 MG, UNK
     Dates: start: 20070722, end: 20070723

REACTIONS (7)
  - BLOOD CALCIUM INCREASED [None]
  - DRY MOUTH [None]
  - MUSCULAR WEAKNESS [None]
  - MYALGIA [None]
  - PAIN IN JAW [None]
  - PARAESTHESIA [None]
  - TRISMUS [None]
